FAERS Safety Report 9839015 (Version 1)
Quarter: 2013Q4

REPORT INFORMATION
  Report Type: Spontaneous
  Country: US (occurrence: None)
  Receive Date: 20131211
  Receipt Date: 20131211
  Transmission Date: 20140711
  Serious: Yes (Hospitalization)
  Sender: FDA-Public Use
  Company Number: 003-137

PATIENT
  Sex: 0

DRUGS (1)
  1. CROFAB (BTG INTERNATIONAL, INC) [Suspect]
     Indication: SNAKE BITE

REACTIONS (1)
  - Thrombocytopenia [None]
